FAERS Safety Report 9476632 (Version 1)
Quarter: 2013Q3

REPORT INFORMATION
  Report Type: Spontaneous
  Country: IT (occurrence: IT)
  Receive Date: 20130826
  Receipt Date: 20130826
  Transmission Date: 20140515
  Serious: Yes (Other)
  Sender: FDA-Public Use
  Company Number: PHHY2013IT090202

PATIENT
  Sex: Male

DRUGS (1)
  1. KETOPROFEN [Suspect]
     Dosage: 1 DF, UNK
     Route: 048
     Dates: start: 20130618, end: 20130618

REACTIONS (4)
  - Dyspnoea [Recovering/Resolving]
  - Erythema [Recovering/Resolving]
  - Erythema of eyelid [Recovering/Resolving]
  - Oedema [Recovering/Resolving]
